FAERS Safety Report 15782862 (Version 1)
Quarter: 2019Q1

REPORT INFORMATION
  Report Type: Spontaneous
  Country: US (occurrence: US)
  Receive Date: 20190102
  Receipt Date: 20190102
  Transmission Date: 20190417
  Serious: No
  Sender: FDA-Public Use
  Company Number: US-PERRIGO-18US000264

PATIENT
  Age: 48 Year
  Sex: Female
  Weight: 61.22 kg

DRUGS (6)
  1. TIOCONAZOLE. [Suspect]
     Active Substance: TIOCONAZOLE
     Indication: VAGINAL DISCHARGE
  2. LEVOTHYROXIN [Concomitant]
     Active Substance: LEVOTHYROXINE
     Indication: THYROIDECTOMY
     Dosage: UNK
     Route: 065
  3. IRON [Concomitant]
     Active Substance: IRON
     Indication: BLOOD IRON DECREASED
     Dosage: UNK
     Route: 065
  4. SYMBICORT [Concomitant]
     Active Substance: BUDESONIDE\FORMOTEROL FUMARATE DIHYDRATE
     Indication: ASTHMA
     Dosage: UNK
     Route: 065
  5. MONTELUCAST [Concomitant]
     Active Substance: MONTELUKAST SODIUM
     Indication: ASTHMA
     Dosage: UNK
     Route: 065
  6. TIOCONAZOLE. [Suspect]
     Active Substance: TIOCONAZOLE
     Indication: VULVOVAGINAL MYCOTIC INFECTION
     Dosage: 300 MG, SINGLE
     Route: 067
     Dates: start: 20180108, end: 20180108

REACTIONS (4)
  - Vulvovaginal inflammation [Not Recovered/Not Resolved]
  - Vulvovaginal pain [Not Recovered/Not Resolved]
  - Haemorrhagic urticaria [Not Recovered/Not Resolved]
  - Vulvovaginal burning sensation [Not Recovered/Not Resolved]

NARRATIVE: CASE EVENT DATE: 20180107
